FAERS Safety Report 15517951 (Version 1)
Quarter: 2018Q4

REPORT INFORMATION
  Report Type: Report from Study
  Country: NL (occurrence: NL)
  Receive Date: 20181017
  Receipt Date: 20181017
  Transmission Date: 20190205
  Serious: Yes (Hospitalization, Other)
  Sender: FDA-Public Use
  Company Number: NL-PFIZER INC-2018410092

PATIENT
  Age: 58 Year
  Sex: Female

DRUGS (8)
  1. NANOCORT [Suspect]
     Active Substance: PREDNISOLONE SODIUM PHOSPHATE
     Dosage: 75MG/500ML, 150 MG/500ML, EVERY TWO WEEKS
     Route: 042
     Dates: start: 20171003, end: 20171003
  2. DEPO-MEDROL [Suspect]
     Active Substance: METHYLPREDNISOLONE ACETATE
     Dosage: 120 MG, SINGLE
     Route: 030
     Dates: start: 20171003, end: 20171003
  3. METHOTREXATE. [Concomitant]
     Active Substance: METHOTREXATE
     Indication: RHEUMATOID ARTHRITIS
     Dosage: 20 MG, WEEKLY
     Dates: start: 20080801
  4. NANOCORT [Suspect]
     Active Substance: PREDNISOLONE SODIUM PHOSPHATE
     Dosage: 75MG/500ML, 150 MG/500ML, EVERY TWO WEEKS
     Route: 042
     Dates: start: 20170919, end: 20170919
  5. FOLIC ACID. [Concomitant]
     Active Substance: FOLIC ACID
     Indication: PROPHYLAXIS
     Dosage: 10 MG, WEEKLY
     Dates: start: 20080801
  6. LEFLUNOMIDE AN [Concomitant]
     Active Substance: LEFLUNOMIDE
     Indication: RHEUMATOID ARTHRITIS
     Dosage: 20 MG, 1X/DAY
     Dates: start: 20150423
  7. DEPO-MEDROL [Suspect]
     Active Substance: METHYLPREDNISOLONE ACETATE
     Indication: RHEUMATOID ARTHRITIS
     Dosage: 120 MG, SINGLE
     Route: 030
     Dates: start: 20170919, end: 20170919
  8. SALMETEROL/FLUTICASONPROPIONAAT [Concomitant]
     Active Substance: FLUTICASONE PROPIONATE\SALMETEROL XINAFOATE
     Indication: DYSPNOEA
     Dosage: 1 DF, UNK

REACTIONS (2)
  - Viral upper respiratory tract infection [Recovered/Resolved]
  - Cataract [Not Recovered/Not Resolved]

NARRATIVE: CASE EVENT DATE: 20171009
